FAERS Safety Report 5028766-0 (Version None)
Quarter: 2006Q2

REPORT INFORMATION
  Report Type: 
  Country: None (occurrence: None)
  Receive Date: 20060501
  Receipt Date: 20060220
  Transmission Date: 20061013
  Serious: Yes (Other)
  Sender: FDA-Public Use
  Company Number: 200611049US

PATIENT
  Age: 36 Year
  Sex: Female
  Weight: 98 kg

DRUGS (4)
  1. KETEK [Suspect]
     Indication: BRONCHITIS
     Dosage: 800 MG QD PO
     Route: 048
     Dates: start: 20060120, end: 20060124
  2. ERGOCALCIFEROL, ASCORBIC ACID, FOLIC ACID, THIAMINE HYDROCHLORIDE, RET [Concomitant]
  3. PSEUDOEPHEDRINE HYDROCHLORIDE [Concomitant]
  4. FEXOFENADINE (ALLEGRA-D) [Concomitant]

REACTIONS (4)
  - ARTHROPATHY [None]
  - BLISTER [None]
  - DIFFICULTY IN WALKING [None]
  - HYPERSENSITIVITY [None]
